FAERS Safety Report 10647927 (Version 1)
Quarter: 2014Q4

REPORT INFORMATION
  Report Type: Spontaneous
  Country: US (occurrence: None)
  Receive Date: 20141211
  Receipt Date: 20141211
  Transmission Date: 20150529
  Serious: No
  Sender: FDA-Public Use
  Company Number: None

PATIENT

DRUGS (2)
  1. METOPROLOL TARTRATE. [Suspect]
     Active Substance: METOPROLOL TARTRATE
     Dosage: ADM ROUTE: ORAL, STRENGTH: 25 MG
     Route: 048
  2. METOPROLOL SUCCINATE EXTENDED-RELEASE [Suspect]
     Active Substance: METOPROLOL SUCCINATE
     Dosage: ADM ROUTE: ORAL
     Route: 048

REACTIONS (3)
  - Intercepted drug dispensing error [None]
  - Wrong drug administered [None]
  - Drug dispensing error [None]
